FAERS Safety Report 13759514 (Version 1)
Quarter: 2017Q3

REPORT INFORMATION
  Report Type: Report from Study
  Country: None (occurrence: US)
  Receive Date: 20170717
  Receipt Date: 20170717
  Transmission Date: 20171127
  Serious: Yes (Other)
  Sender: FDA-Public Use
  Company Number: US-IPSEN BIOPHARMACEUTICALS, INC.-2012-3451

PATIENT
  Age: 47 Year
  Sex: Female
  Weight: 72.1 kg

DRUGS (13)
  1. SOMATULINE DEPOT [Suspect]
     Active Substance: LANREOTIDE ACETATE
     Dosage: 120 MG
     Route: 058
     Dates: start: 20121101
  2. VITAMIN B12 [Concomitant]
     Active Substance: CYANOCOBALAMIN
     Indication: PRODUCT USED FOR UNKNOWN INDICATION
     Dosage: NOT REPORTED
     Route: 065
  3. MULTIVITAMIN [Concomitant]
     Active Substance: VITAMINS
     Indication: PRODUCT USED FOR UNKNOWN INDICATION
     Dosage: 2 TABLETS, WITH FOOD
     Route: 048
  4. SOMATULINE DEPOT [Suspect]
     Active Substance: LANREOTIDE ACETATE
     Dosage: 90 MG
     Route: 058
     Dates: start: 20121003, end: 20121003
  5. EPIPEN 0.3 MG/0.3 ML [Concomitant]
     Indication: ANAPHYLACTIC REACTION
     Dosage: 0.3 MG/0.3 ML
     Route: 030
  6. LAMICTAL [Concomitant]
     Active Substance: LAMOTRIGINE
     Indication: DEPRESSION
     Route: 048
  7. CALCIUM, MAGNESIUM + D [Concomitant]
     Indication: PRODUCT USED FOR UNKNOWN INDICATION
     Dosage: NOT REPORTED
     Route: 065
  8. DIGESTIVE ENZYMES [Concomitant]
     Active Substance: UNSPECIFIED INGREDIENT
     Indication: PRODUCT USED FOR UNKNOWN INDICATION
     Dosage: NOT REPORTED
     Route: 048
  9. FISH OIL [Concomitant]
     Active Substance: FISH OIL
     Indication: PRODUCT USED FOR UNKNOWN INDICATION
     Route: 048
  10. LEVOTHYROXINE. [Concomitant]
     Active Substance: LEVOTHYROXINE
     Indication: PRODUCT USED FOR UNKNOWN INDICATION
     Route: 048
  11. SOMATULINE DEPOT [Suspect]
     Active Substance: LANREOTIDE ACETATE
     Indication: ACROMEGALY
     Dosage: 60 MG
     Route: 058
     Dates: start: 20120629, end: 201209
  12. GLUCOSAMINE MSM [Concomitant]
     Indication: PRODUCT USED FOR UNKNOWN INDICATION
     Dosage: 1500 MG- 500 MG/30 ML
     Route: 048
  13. MAGNESIUM [Concomitant]
     Active Substance: MAGNESIUM
     Indication: PRODUCT USED FOR UNKNOWN INDICATION
     Route: 048

REACTIONS (16)
  - Papillary thyroid cancer [Not Recovered/Not Resolved]
  - Oesophageal stenosis [None]
  - Headache [Not Recovered/Not Resolved]
  - Body temperature fluctuation [None]
  - Pain [None]
  - Flatulence [Not Recovered/Not Resolved]
  - Diarrhoea [Not Recovered/Not Resolved]
  - Abdominal pain [None]
  - Dyspepsia [None]
  - Influenza like illness [Unknown]
  - Vagus nerve disorder [None]
  - Constipation [Not Recovered/Not Resolved]
  - Nausea [Not Recovered/Not Resolved]
  - Abdominal pain [None]
  - Abdominal distension [None]
  - Vomiting [None]

NARRATIVE: CASE EVENT DATE: 20120719
